FAERS Safety Report 9356011 (Version 2)
Quarter: 2013Q3

REPORT INFORMATION
  Report Type: Spontaneous
  Country: DK (occurrence: DK)
  Receive Date: 20130619
  Receipt Date: 20130708
  Transmission Date: 20140515
  Serious: Yes (Other)
  Sender: FDA-Public Use
  Company Number: DK-ELI_LILLY_AND_COMPANY-DK201306003339

PATIENT
  Sex: Female
  Weight: 54 kg

DRUGS (3)
  1. FORSTEO [Suspect]
     Indication: OSTEOPOROSIS
     Dosage: 20 UG, QD
     Dates: start: 20110115, end: 20130115
  2. ACETYLSALICYLIC ACID [Concomitant]
     Dosage: 100 MG, QD
  3. SIMVASTIN [Concomitant]
     Dosage: 20 MG, QD

REACTIONS (1)
  - Myelofibrosis [Not Recovered/Not Resolved]
